FAERS Safety Report 24879826 (Version 1)
Quarter: 2025Q1

REPORT INFORMATION
  Report Type: Report from Study
  Country: US (occurrence: US)
  Receive Date: 20250123
  Receipt Date: 20250123
  Transmission Date: 20250408
  Serious: Yes (Other)
  Sender: ALEXION PHARMACEUTICALS
  Company Number: US-AstraZeneca-CH-00785225A

PATIENT

DRUGS (2)
  1. TEZEPELUMAB [Suspect]
     Active Substance: TEZEPELUMAB
     Route: 065
  2. TEZEPELUMAB [Suspect]
     Active Substance: TEZEPELUMAB

REACTIONS (17)
  - Type 2 diabetes mellitus [Unknown]
  - Pneumonia [Unknown]
  - Heart rate decreased [Unknown]
  - Hyperlipidaemia [Unknown]
  - Obstructive sleep apnoea syndrome [Unknown]
  - Gastrooesophageal reflux disease [Unknown]
  - Stenotrophomonas infection [Unknown]
  - Seasonal allergy [Unknown]
  - Blood cholesterol increased [Unknown]
  - Anxiety [Unknown]
  - Arthritis [Unknown]
  - Chronic obstructive pulmonary disease [Unknown]
  - Depression [Unknown]
  - Dyspnoea [Unknown]
  - Chronic sinusitis [Unknown]
  - Asthma [Unknown]
  - Heart rate increased [Unknown]
